FAERS Safety Report 14957984 (Version 3)
Quarter: 2018Q4

REPORT INFORMATION
  Report Type: Spontaneous
  Country: US (occurrence: US)
  Receive Date: 20180531
  Receipt Date: 20181002
  Transmission Date: 20190204
  Serious: No
  Sender: FDA-Public Use
  Company Number: US-ASTRAZENECA-2018SE61092

PATIENT
  Age: 720 Month
  Sex: Female
  Weight: 104.3 kg

DRUGS (4)
  1. SYMBICORT [Suspect]
     Active Substance: BUDESONIDE\FORMOTEROL FUMARATE DIHYDRATE
     Indication: CHRONIC OBSTRUCTIVE PULMONARY DISEASE
     Dosage: 160/4.5 MCG, TWO TIMES A DAY
     Route: 055
     Dates: start: 2017
  2. VENTOLIN [Concomitant]
     Active Substance: ALBUTEROL SULFATE
     Indication: RESPIRATORY THERAPY
     Dosage: AS REQUIRED
     Route: 055
  3. SYMBICORT [Suspect]
     Active Substance: BUDESONIDE\FORMOTEROL FUMARATE DIHYDRATE
     Indication: CHRONIC OBSTRUCTIVE PULMONARY DISEASE
     Dosage: 3 PUFFS TWICE PER DAY
     Route: 055
  4. ATROVENT HFA [Concomitant]
     Active Substance: IPRATROPIUM BROMIDE
     Indication: CHRONIC OBSTRUCTIVE PULMONARY DISEASE
     Route: 055

REACTIONS (5)
  - Device malfunction [Unknown]
  - Circumstance or information capable of leading to medication error [Unknown]
  - Dyspnoea [Unknown]
  - Pneumonia [Unknown]
  - Intentional product misuse [Unknown]

NARRATIVE: CASE EVENT DATE: 201709
